FAERS Safety Report 6083919-8 (Version None)
Quarter: 2009Q1

REPORT INFORMATION
  Report Type: 
  Country: None (occurrence: None)
  Receive Date: 20090204
  Receipt Date: 20071005
  Transmission Date: 20090719
  Serious: No
  Sender: FDA-Public Use
  Company Number: 268221

PATIENT
  Age: 61 Year
  Sex: Female

DRUGS (4)
  1. NOVOLOG [Suspect]
     Indication: INSULIN-REQUIRING TYPE 2 DIABETES MELLITUS
     Dosage: 25 IU, BID, SUBCUTANEOUS
     Route: 058
     Dates: start: 20070919
  2. LANTUS [Concomitant]
  3. MAXIDENE (PIROXICAM) [Concomitant]
  4. AVALIDE [Concomitant]

REACTIONS (5)
  - ABDOMINAL DISTENSION [None]
  - DYSPNOEA [None]
  - MALAISE [None]
  - NASAL CONGESTION [None]
  - VISUAL IMPAIRMENT [None]
